FAERS Safety Report 10188583 (Version 1)
Quarter: 2014Q2

REPORT INFORMATION
  Report Type: Spontaneous
  Country: US (occurrence: US)
  Receive Date: 20140522
  Receipt Date: 20140522
  Transmission Date: 20141212
  Serious: No
  Sender: FDA-Public Use
  Company Number: US-SA-2014SA015852

PATIENT
  Age: 77 Year
  Sex: Female
  Weight: 110 kg

DRUGS (12)
  1. LANTUS SOLOSTAR [Suspect]
     Indication: TYPE 2 DIABETES MELLITUS
     Dosage: DOSE:6 UNIT(S)
     Route: 058
     Dates: start: 201307
  2. LANTUS SOLOSTAR [Suspect]
     Indication: TYPE 2 DIABETES MELLITUS
     Dosage: DOSE:8 UNIT(S)
     Route: 051
     Dates: start: 20140215
  3. LANTUS SOLOSTAR [Suspect]
     Indication: TYPE 2 DIABETES MELLITUS
     Dosage: DOSE:5 UNIT(S)
     Route: 051
     Dates: start: 201402
  4. BYETTA [Concomitant]
  5. METFORMIN [Concomitant]
  6. SOLOSTAR [Concomitant]
     Indication: TYPE 2 DIABETES MELLITUS
     Dates: start: 201307
  7. KLOR-CON [Concomitant]
     Route: 065
  8. LOSARTAN [Concomitant]
     Indication: HYPERTENSION
     Route: 065
  9. AMLODIPINE [Concomitant]
     Route: 065
  10. LORATADINE [Concomitant]
     Indication: HYPERSENSITIVITY
     Route: 065
  11. FUROSEMIDE [Concomitant]
     Indication: HYPERTENSION
     Route: 065
  12. DIAZEPAM [Concomitant]
     Dosage: TAKEN FROM: APPROX 10 YEARS?DOSE:1/4 - 1/2 DAILY
     Route: 065

REACTIONS (6)
  - Abdominal pain upper [Recovered/Resolved]
  - Muscle spasms [Recovering/Resolving]
  - Pain [Recovering/Resolving]
  - Sensory loss [Unknown]
  - Gastrointestinal disorder [Recovering/Resolving]
  - Blood glucose abnormal [Unknown]
